FAERS Safety Report 9922711 (Version 1)
Quarter: 2014Q1

REPORT INFORMATION
  Report Type: Spontaneous
  Country: IT (occurrence: IT)
  Receive Date: 20140225
  Receipt Date: 20140225
  Transmission Date: 20141002
  Serious: Yes (Hospitalization)
  Sender: FDA-Public Use
  Company Number: IT-ASTRAZENECA-2014SE11151

PATIENT
  Age: 17 Year
  Sex: Female
  Weight: 70 kg

DRUGS (1)
  1. SEROQUEL [Suspect]
     Dosage: 2 TABLET 300 MG AND 1 TABLET OF 400 MG
     Route: 048
     Dates: start: 20121205, end: 20121205

REACTIONS (1)
  - Medication error [Recovered/Resolved]
